FAERS Safety Report 8460620-4 (Version None)
Quarter: 2012Q2

REPORT INFORMATION
  Report Type: 
  Country: None (occurrence: None)
  Receive Date: 20120622
  Receipt Date: 20120612
  Transmission Date: 20120825
  Serious: Yes (Death, Other)
  Sender: FDA-Public Use
  Company Number: JP-ROCHE-1079564

PATIENT
  Sex: Male
  Weight: 40 kg

DRUGS (13)
  1. XOLAIR [Suspect]
     Route: 058
     Dates: start: 20111115, end: 20111115
  2. SPIRIVA [Concomitant]
  3. ERYTHROCIN [Concomitant]
  4. MAGMITT [Concomitant]
  5. MONTELUKAST SODIUM [Concomitant]
  6. OMEPRAZOLE [Concomitant]
  7. XOLAIR [Suspect]
     Indication: ASTHMA
     Dosage: Q4 WEEK
     Route: 058
     Dates: start: 20111017
  8. HOKUNALIN [Concomitant]
  9. PREDNISOLONE [Concomitant]
  10. TORSEMIDE [Concomitant]
  11. ITRACONAZOLE [Concomitant]
  12. ASMANEX TWISTHALER [Concomitant]
  13. MUCODYNE [Concomitant]

REACTIONS (3)
  - HAEMOPTYSIS [None]
  - BRONCHOPULMONARY ASPERGILLOSIS [None]
  - BACTERIAL INFECTION [None]
